FAERS Safety Report 9379771 (Version 1)
Quarter: 2013Q3

REPORT INFORMATION
  Report Type: Spontaneous
  Country: GR (occurrence: GR)
  Receive Date: 20130702
  Receipt Date: 20130702
  Transmission Date: 20140515
  Serious: Yes (Other)
  Sender: FDA-Public Use
  Company Number: PHHY2013GR064823

PATIENT
  Age: 52 Year
  Sex: Male

DRUGS (4)
  1. CICLOSPORIN [Suspect]
     Indication: IMMUNOSUPPRESSION
  2. MYCOPHENOLATE MOFETIL [Interacting]
     Indication: IMMUNOSUPPRESSION
  3. PREDNISOLONE [Interacting]
     Indication: IMMUNOSUPPRESSION
  4. RITUXIMAB [Interacting]

REACTIONS (4)
  - Hepatitis B [Unknown]
  - Hepatic enzyme increased [Unknown]
  - Drug interaction [Unknown]
  - Viral mutation identified [Unknown]
